FAERS Safety Report 11046420 (Version 1)
Quarter: 2015Q2

REPORT INFORMATION
  Report Type: Report from Study
  Country: US (occurrence: US)
  Receive Date: 20150420
  Receipt Date: 20150420
  Transmission Date: 20150821
  Serious: Yes (Other)
  Sender: FDA-Public Use
  Company Number: US-ROCHE-1537020

PATIENT
  Age: 60 Year
  Sex: Male

DRUGS (4)
  1. PREDNISONE. [Concomitant]
     Active Substance: PREDNISONE
     Indication: PAIN
     Dosage: 5-20 MG, PRN IM
     Route: 048
  2. RITUXAN [Suspect]
     Active Substance: RITUXIMAB
     Indication: GRANULOMATOSIS WITH POLYANGIITIS
     Dosage: X2 EVERY 4-6 WEEKS
     Route: 042
     Dates: start: 2010
  3. PREDNISONE. [Concomitant]
     Active Substance: PREDNISONE
     Indication: HYPOGAMMAGLOBULINAEMIA
  4. RITUXAN [Suspect]
     Active Substance: RITUXIMAB
     Dosage: X4 EVERY 4-6 WEEKS
     Route: 042
     Dates: start: 2010

REACTIONS (5)
  - Blood immunoglobulin M decreased [Unknown]
  - Blood immunoglobulin G decreased [Unknown]
  - Infection [Unknown]
  - Blood immunoglobulin A decreased [Unknown]
  - Chronic sinusitis [Unknown]
